FAERS Safety Report 4652601-3 (Version None)
Quarter: 2005Q2

REPORT INFORMATION
  Report Type: 
  Country: None (occurrence: None)
  Receive Date: 20050502
  Receipt Date: 20050422
  Transmission Date: 20051028
  Serious: Yes (Hospitalization)
  Sender: FDA-Public Use
  Company Number: 800354

PATIENT
  Age: 87 Year
  Sex: Male

DRUGS (12)
  1. EXTRANEAL [Suspect]
     Indication: PERITONEAL DIALYSIS
     Dosage: 1 BAG; QD
     Dates: start: 20050409, end: 20050413
  2. LASILIX [Concomitant]
  3. ZOLOFT [Concomitant]
  4. MONO-TILDIEM [Concomitant]
  5. FORLAX [Concomitant]
  6. FERROGRAD [Concomitant]
  7. XATRAL [Concomitant]
  8. LEVOCARNIL [Concomitant]
  9. MOTILIUM-M [Concomitant]
  10. CALPEROS D3 [Concomitant]
  11. MOPRAL [Concomitant]
  12. ISO BALANCE [Concomitant]

REACTIONS (5)
  - ABDOMINAL PAIN [None]
  - LYMPHOCYTE COUNT DECREASED [None]
  - NEUTROPHIL COUNT DECREASED [None]
  - RED BLOOD CELL COUNT INCREASED [None]
  - WHITE BLOOD CELL COUNT ABNORMAL [None]
